FAERS Safety Report 7339825-1 (Version None)
Quarter: 2011Q1

REPORT INFORMATION
  Report Type: 
  Country: None (occurrence: None)
  Receive Date: 20110309
  Receipt Date: 20110223
  Transmission Date: 20110831
  Serious: Yes (Hospitalization)
  Sender: FDA-Public Use
  Company Number: DE-CELGENEUS-062-C5013-07051525

PATIENT
  Age: 79 Year
  Sex: Male
  Weight: 69 kg

DRUGS (5)
  1. CC-5013 [Suspect]
     Indication: MULTIPLE MYELOMA
     Dosage: 10 MILLIGRAM
     Route: 048
     Dates: start: 20070511, end: 20070518
  2. PANTOPRAZOL [Concomitant]
     Dosage: 20 MILLIGRAM
     Route: 065
  3. PREDNISONE [Suspect]
     Indication: MULTIPLE MYELOMA
     Dosage: 2 MILLIGRAM/KILOGRAM
     Route: 065
     Dates: start: 20070511, end: 20070514
  4. ASPIRIN [Concomitant]
     Dosage: 100 MILLIGRAM
     Route: 065
  5. MELPHALAN [Suspect]
     Indication: MULTIPLE MYELOMA
     Dosage: .18 MILLIGRAM/KILOGRAM
     Route: 065
     Dates: start: 20070511, end: 20070514

REACTIONS (1)
  - LIGHT CHAIN DISEASE [None]
